FAERS Safety Report 7650604-8 (Version None)
Quarter: 2011Q3

REPORT INFORMATION
  Report Type: 
  Country: None (occurrence: None)
  Receive Date: 20110802
  Receipt Date: 20110717
  Transmission Date: 20111222
  Serious: No
  Sender: FDA-Public Use
  Company Number: US-BAYER-2011-063475

PATIENT
  Sex: Female

DRUGS (4)
  1. TYLENOL-500 [Concomitant]
  2. ADVIL LIQUI-GELS [Concomitant]
  3. EXCEDRIN (MIGRAINE) [Concomitant]
  4. ALEVE (CAPLET) [Suspect]
     Indication: HEADACHE
     Route: 048

REACTIONS (1)
  - HEADACHE [None]
